FAERS Safety Report 8956033 (Version 1)
Quarter: 2012Q4

REPORT INFORMATION
  Report Type: 
  Country: PL (occurrence: PL)
  Receive Date: 20121210
  Receipt Date: 20121210
  Transmission Date: 20130627
  Serious: Yes (Life-Threatening)
  Sender: FDA-Public Use
  Company Number: PHHY2012PL113213

PATIENT
  Age: 32 Year
  Sex: Male
  Weight: 110 kg

DRUGS (1)
  1. XORIMAX [Suspect]
     Indication: UPPER RESPIRATORY TRACT INFECTION
     Dosage: 500 mg, BID
     Route: 048
     Dates: start: 20120930, end: 20120930

REACTIONS (9)
  - Respiratory disorder [Unknown]
  - Cardiovascular disorder [Unknown]
  - Hypotonia [Unknown]
  - Pharyngeal oedema [Unknown]
  - Tongue oedema [Unknown]
  - Lip oedema [Unknown]
  - Hyperhidrosis [Unknown]
  - Urticaria [Unknown]
  - Dyspnoea [Unknown]
